FAERS Safety Report 8581940-9 (Version None)
Quarter: 2012Q2

REPORT INFORMATION
  Report Type: 
  Country: None (occurrence: None)
  Receive Date: 20120423
  Receipt Date: 20100727
  Transmission Date: 20120825
  Serious: Yes (Other)
  Sender: FDA-Public Use
  Company Number: PHHY2010US49045

PATIENT
  Sex: Female
  Weight: 75 kg

DRUGS (1)
  1. EXJADE [Suspect]
     Indication: SICKLE CELL ANAEMIA
     Dosage: 1500 MG, ORAL
     Route: 048
     Dates: start: 20100430

REACTIONS (1)
  - RENAL DISORDER [None]
